FAERS Safety Report 18464190 (Version 1)
Quarter: 2020Q4

REPORT INFORMATION
  Report Type: Report from Study
  Country: FR (occurrence: FR)
  Receive Date: 20201104
  Receipt Date: 20201104
  Transmission Date: 20210114
  Serious: Yes (Death, Other)
  Sender: FDA-Public Use
  Company Number: FR-JAZZ-2020-FR-002315

PATIENT

DRUGS (8)
  1. CEFTOLOZANE [Concomitant]
     Active Substance: CEFTOLOZANE
     Indication: INFECTION
     Dosage: 3 GRAM, QD
     Route: 042
     Dates: start: 20191011, end: 20191014
  2. DEFITELIO [Suspect]
     Active Substance: DEFIBROTIDE SODIUM
     Indication: VENOOCCLUSIVE LIVER DISEASE
     Dosage: 25 MG/KG/DAY
     Route: 042
     Dates: start: 20191011, end: 20191014
  3. SPASFON [PHLOROGLUCINOL] [Concomitant]
     Active Substance: PHLOROGLUCINOL
     Indication: PAIN
     Dosage: 240 MILLIGRAM, QD
     Route: 042
     Dates: start: 20191012, end: 20191014
  4. CYCLOSPORINE. [Concomitant]
     Active Substance: CYCLOSPORINE
     Indication: PROPHYLAXIS AGAINST GRAFT VERSUS HOST DISEASE
     Dosage: 150 MILLIGRAM, QD
     Route: 042
     Dates: start: 20191007, end: 20191014
  5. MICAFUNGIN. [Concomitant]
     Active Substance: MICAFUNGIN SODIUM
     Indication: PROPHYLAXIS
     Dosage: 50 MILLIGRAM, QD
     Route: 042
     Dates: start: 20190923, end: 20191014
  6. BACTRIM [Concomitant]
     Active Substance: SULFAMETHOXAZOLE\TRIMETHOPRIM
     Indication: PROPHYLAXIS
     Dosage: 800/160 MILLIGRAM, QD
     Route: 048
     Dates: start: 20190925, end: 20191014
  7. ACICLOVIR [Concomitant]
     Active Substance: ACYCLOVIR
     Indication: PRODUCT USED FOR UNKNOWN INDICATION
     Dosage: 1500 MILLIGRAM, QD
     Route: 042
     Dates: start: 20191007, end: 20191014
  8. NUTRISON [NUTRIENTS NOS] [Concomitant]
     Active Substance: AMINO ACIDS\CARBOHYDRATES\MINERALS\SOYBEAN OIL\VITAMINS
     Indication: MALNUTRITION
     Dosage: 500 MILLILITER, QD
     Route: 051
     Dates: start: 20191010, end: 20191014

REACTIONS (3)
  - Multiple organ dysfunction syndrome [Unknown]
  - Intestinal sepsis [Fatal]
  - Acute myeloid leukaemia recurrent [Fatal]

NARRATIVE: CASE EVENT DATE: 201910
